FAERS Safety Report 8445865 (Version 3)
Quarter: 2017Q2

REPORT INFORMATION
  Report Type: Spontaneous
  Country: US (occurrence: US)
  Receive Date: 20120307
  Receipt Date: 20170421
  Transmission Date: 20170830
  Serious: No
  Sender: FDA-Public Use
  Company Number: US-ASTRAZENECA-2011SE73831

PATIENT
  Age: 20519 Day
  Sex: Female

DRUGS (3)
  1. ZOMIG [Suspect]
     Active Substance: ZOLMITRIPTAN
     Indication: MIGRAINE
     Route: 048
  2. ZOMIG [Suspect]
     Active Substance: ZOLMITRIPTAN
     Indication: MIGRAINE
     Dosage: 5.0MG UNKNOWN
     Route: 048
     Dates: start: 201003
  3. ZOMIG [Suspect]
     Active Substance: ZOLMITRIPTAN
     Indication: MIGRAINE
     Dosage: ZOMIG ZMT
     Route: 048

REACTIONS (4)
  - Drug dose omission [Unknown]
  - Herpes zoster [Unknown]
  - Migraine [Unknown]
  - Crohn^s disease [Unknown]

NARRATIVE: CASE EVENT DATE: 20170403
